FAERS Safety Report 20843455 (Version 1)
Quarter: 2022Q2

REPORT INFORMATION
  Report Type: Spontaneous
  Country: US (occurrence: None)
  Receive Date: 20220517
  Receipt Date: 20220517
  Transmission Date: 20220721
  Serious: Yes (Death)
  Sender: FDA-Public Use
  Company Number: None

PATIENT
  Age: 66 Year
  Sex: Female

DRUGS (10)
  1. ENTECAVIR [Suspect]
     Active Substance: ENTECAVIR
  2. ATORVASTATIN [Concomitant]
     Active Substance: ATORVASTATIN
  3. ENTECAVIR [Concomitant]
     Active Substance: ENTECAVIR
  4. ATORVASTATIN [Concomitant]
  5. ENTECAVIR [Concomitant]
     Active Substance: ENTECAVIR
  6. LIVALO TAB [Concomitant]
  7. REVLIMID [Concomitant]
     Active Substance: LENALIDOMIDE
  8. SLO-NIACIN TAB [Concomitant]
  9. WELCHOL TAB [Concomitant]
  10. ZETIA [Concomitant]

REACTIONS (6)
  - Hyperlipidaemia [None]
  - Hepatitis [None]
  - Carotid artery stenosis [None]
  - Arterial occlusive disease [None]
  - Peripheral T-cell lymphoma unspecified [None]
  - Hepatitis C [None]

NARRATIVE: CASE EVENT DATE: 20220509
